FAERS Safety Report 24588670 (Version 1)
Quarter: 2024Q4

REPORT INFORMATION
  Report Type: Spontaneous
  Country: US (occurrence: None)
  Receive Date: 20241105
  Receipt Date: 20241105
  Transmission Date: 20250114
  Serious: Yes (Death)
  Sender: Public
  Company Number: None

PATIENT
  Age: 74 Year
  Sex: Male

DRUGS (1)
  1. COLLAGENASE SANTYL [Suspect]
     Active Substance: COLLAGENASE CLOSTRIDIUM HISTOLYTICUM
     Indication: Impaired healing
     Dosage: 30 GM DAILY TOPICAL
     Route: 061
     Dates: start: 20240703

REACTIONS (1)
  - Death [None]

NARRATIVE: CASE EVENT DATE: 20241105
